FAERS Safety Report 8696102 (Version 3)
Quarter: 2013Q4

REPORT INFORMATION
  Report Type: Spontaneous
  Country: US (occurrence: US)
  Receive Date: 20120801
  Receipt Date: 20131031
  Transmission Date: 20140711
  Serious: Yes (Other)
  Sender: FDA-Public Use
  Company Number: US-009507513-1207USA011556

PATIENT
  Sex: Male

DRUGS (1)
  1. DULERA [Suspect]
     Dosage: 2 DF, BID

REACTIONS (1)
  - Loss of consciousness [Unknown]
